FAERS Safety Report 8575666 (Version 2)
Quarter: 2012Q4

REPORT INFORMATION
  Report Type: 
  Country: US (occurrence: US)
  Receive Date: 20120523
  Receipt Date: 20121226
  Transmission Date: 20130627
  Serious: Yes (Hospitalization)
  Sender: FDA-Public Use
  Company Number: US-PFIZER INC-2012121767

PATIENT
  Age: 73 Year
  Sex: Male
  Weight: 117.9 kg

DRUGS (8)
  1. NEURONTIN [Suspect]
     Dosage: UNK
  2. CELEBREX [Suspect]
     Indication: ARTHRITIS
     Dosage: 200 mg, 1x/day
     Route: 048
  3. EFFEXOR XR [Suspect]
     Indication: DEPRESSION
     Dosage: 75 mg, 1x/day
     Route: 048
     Dates: start: 20120417
  4. LIPITOR [Suspect]
     Indication: HIGH CHOLESTEROL
     Dosage: 40 mg, 1x/day
     Route: 048
  5. LYRICA [Suspect]
     Indication: PAIN IN LEG
     Dosage: UNK
     Route: 048
     Dates: start: 20120508
  6. LYRICA [Suspect]
     Indication: NEUROPATHY
     Dosage: 75 mg, 2x/day
     Route: 048
  7. COREG [Concomitant]
     Indication: POSTOPERATIVE CARE
     Dosage: 6.25 mg, 2x/day
     Route: 048
     Dates: start: 20120419
  8. XARELTO [Concomitant]
     Indication: ANTICOAGULANT THERAPY
     Dosage: UNK

REACTIONS (4)
  - Musculoskeletal disorder [Unknown]
  - Confusional state [Unknown]
  - Pain [Unknown]
  - Restless legs syndrome [Unknown]
